FAERS Safety Report 17444990 (Version 1)
Quarter: 2020Q1

REPORT INFORMATION
  Report Type: Spontaneous
  Country: FR (occurrence: FR)
  Receive Date: 20200221
  Receipt Date: 20200221
  Transmission Date: 20200409
  Serious: Yes (Other)
  Sender: FDA-Public Use
  Company Number: FR-ROCHE-2552491

PATIENT
  Sex: Female
  Weight: 80 kg

DRUGS (5)
  1. FLUDARABINE [Suspect]
     Active Substance: FLUDARABINE PHOSPHATE
     Indication: DIFFUSE LARGE B-CELL LYMPHOMA
     Route: 065
     Dates: start: 2006
  2. ESHAP [Suspect]
     Active Substance: CISPLATIN\CYTARABINE\ETOPOSIDE\METHYLPREDNISOLONE (ESHAP)
     Indication: DIFFUSE LARGE B-CELL LYMPHOMA
     Route: 065
     Dates: start: 2009
  3. CHLORAMINOPHENE [Concomitant]
     Active Substance: CHLORAMBUCIL
  4. RITUXIMAB. [Suspect]
     Active Substance: RITUXIMAB
     Indication: DIFFUSE LARGE B-CELL LYMPHOMA
     Route: 065
  5. MITOXANTRONE [Suspect]
     Active Substance: MITOXANTRONE HYDROCHLORIDE
     Indication: DIFFUSE LARGE B-CELL LYMPHOMA
     Route: 065
     Dates: start: 2006

REACTIONS (11)
  - Haematotoxicity [Unknown]
  - Febrile bone marrow aplasia [Unknown]
  - Clostridium difficile infection [Unknown]
  - Renal failure [Unknown]
  - Infection [Unknown]
  - Pancytopenia [Unknown]
  - Intentional product use issue [Unknown]
  - Sepsis [Unknown]
  - Hypoacusis [Unknown]
  - Cardiac failure [Unknown]
  - Off label use [Unknown]
